FAERS Safety Report 25198819 (Version 3)
Quarter: 2025Q3

REPORT INFORMATION
  Report Type: Spontaneous
  Country: US (occurrence: US)
  Receive Date: 20250415
  Receipt Date: 20250923
  Transmission Date: 20251021
  Serious: No
  Sender: SUNOVION
  Company Number: US-SMPA-2025SPA003287AA

PATIENT
  Age: 79 Year
  Sex: Male

DRUGS (2)
  1. ORGOVYX [Suspect]
     Active Substance: RELUGOLIX
     Indication: Prostate cancer
     Route: 048
  2. ORGOVYX [Suspect]
     Active Substance: RELUGOLIX
     Dosage: 120 MG, QD
     Route: 048
     Dates: start: 20250224

REACTIONS (6)
  - Feeling cold [Unknown]
  - Feeling of body temperature change [Unknown]
  - Constipation [Unknown]
  - Fatigue [Unknown]
  - Hot flush [Unknown]
  - Anaemia [Unknown]
